FAERS Safety Report 25236010 (Version 1)
Quarter: 2025Q2

REPORT INFORMATION
  Report Type: Spontaneous
  Country: US (occurrence: US)
  Receive Date: 20250424
  Receipt Date: 20250424
  Transmission Date: 20250717
  Serious: No
  Sender: AMGEN
  Company Number: US-AMGEN-USASP2025080852

PATIENT
  Sex: Female

DRUGS (3)
  1. OTEZLA [Suspect]
     Active Substance: APREMILAST
     Indication: Psoriasis
     Dosage: 30 MILLIGRAM, BID
     Route: 048
     Dates: start: 20240710
  2. CLOBETASOL [Concomitant]
     Active Substance: CLOBETASOL
  3. MOMETASONE [Concomitant]
     Active Substance: MOMETASONE

REACTIONS (2)
  - Psoriasis [Unknown]
  - Therapy interrupted [Unknown]
